FAERS Safety Report 7741300-7 (Version None)
Quarter: 2011Q3

REPORT INFORMATION
  Report Type: 
  Country: None (occurrence: None)
  Receive Date: 20110909
  Receipt Date: 20110829
  Transmission Date: 20111222
  Serious: Yes (Other)
  Sender: FDA-Public Use
  Company Number: BR-ELI_LILLY_AND_COMPANY-BR201108009391

PATIENT
  Sex: Female
  Weight: 67 kg

DRUGS (1)
  1. HUMULIN N [Suspect]
     Dosage: UNK UNK, UNKNOWN
     Route: 065

REACTIONS (5)
  - ABORTION SPONTANEOUS [None]
  - MATERNAL EXPOSURE DURING PREGNANCY [None]
  - HYPOAESTHESIA [None]
  - CHILLS [None]
  - HYPOAESTHESIA ORAL [None]
